FAERS Safety Report 23100249 (Version 1)
Quarter: 2023Q4

REPORT INFORMATION
  Report Type: Spontaneous
  Country: US (occurrence: US)
  Receive Date: 20231024
  Receipt Date: 20231024
  Transmission Date: 20240110
  Serious: No
  Sender: FDA-Public Use
  Company Number: US-BAYER-2023A138975

PATIENT
  Age: 68 Year
  Sex: Female
  Weight: 132 kg

DRUGS (27)
  1. CLARITIN [Suspect]
     Active Substance: LORATADINE
     Indication: Seasonal allergy
     Dosage: UNK
     Dates: start: 2023, end: 2023
  2. TYVASO [Concomitant]
     Active Substance: TREPROSTINIL
     Indication: Metastases to lung
     Dosage: 72 MG, QID
     Dates: start: 2023, end: 2023
  3. TYVASO [Concomitant]
     Active Substance: TREPROSTINIL
     Indication: Metastases to lung
     Dosage: UNK
     Route: 045
     Dates: start: 2023
  4. TYVASO [Concomitant]
     Active Substance: TREPROSTINIL
     Indication: Metastases to lung
     Dosage: 108 MG, QID
  5. TYVASO [Concomitant]
     Active Substance: TREPROSTINIL
     Indication: Metastases to lung
     Dosage: UNK
     Route: 045
     Dates: start: 20231007
  6. WARFARIN SODIUM [Concomitant]
     Active Substance: WARFARIN SODIUM
     Dosage: UNK
  7. DILTIAZEM HYDROCHLORIDE [Concomitant]
     Active Substance: DILTIAZEM HYDROCHLORIDE
     Dosage: UNK
  8. METOPROLOL SUCCINATE [Concomitant]
     Active Substance: METOPROLOL SUCCINATE
     Dosage: UNK
  9. ASPIRIN [Concomitant]
     Active Substance: ASPIRIN
     Dosage: UNK
  10. ONDANSETRON HYDROCHLORIDE [Concomitant]
     Active Substance: ONDANSETRON HYDROCHLORIDE
  11. LEVOTHYROXINE SODIUM [Concomitant]
     Active Substance: LEVOTHYROXINE SODIUM
  12. ATORVASTATIN CALCIUM [Concomitant]
     Active Substance: ATORVASTATIN CALCIUM
  13. FLUTICASONE PROPIONATE [Concomitant]
     Active Substance: FLUTICASONE PROPIONATE
  14. HERBALS\TURMERIC [Concomitant]
     Active Substance: HERBALS\TURMERIC
  15. SPIRONOLACTONE [Concomitant]
     Active Substance: SPIRONOLACTONE
  16. UBIDECARENONE [Concomitant]
     Active Substance: UBIDECARENONE
  17. ALLIUM SATIVUM OIL [Concomitant]
  18. OXYGEN [Concomitant]
     Active Substance: OXYGEN
  19. COMBINED BACILLUS SUBTILIS AND ENTEROCOCCUS FAECIUM GRANULES WITH [Concomitant]
  20. TORSEMIDE [Concomitant]
     Active Substance: TORSEMIDE
  21. ASCORBIC ACID [Concomitant]
     Active Substance: ASCORBIC ACID
  22. EMPAGLIFLOZIN [Concomitant]
     Active Substance: EMPAGLIFLOZIN
  23. MAGNESIUM [Concomitant]
     Active Substance: MAGNESIUM
  24. FERROUS SULFATE [Concomitant]
     Active Substance: FERROUS SULFATE
  25. FISH OIL [Concomitant]
     Active Substance: FISH OIL
  26. TRULICITY [Concomitant]
     Active Substance: DULAGLUTIDE
  27. MELATONIN [Concomitant]
     Active Substance: MELATONIN

REACTIONS (1)
  - Insomnia [None]
